FAERS Safety Report 5856126-9 (Version None)
Quarter: 2008Q3

REPORT INFORMATION
  Report Type: 
  Country: None (occurrence: None)
  Receive Date: 20080821
  Receipt Date: 20080821
  Transmission Date: 20090109
  Serious: Yes (Death, Other)
  Sender: FDA-Public Use
  Company Number: None

PATIENT
  Age: 59 Year
  Sex: Female

DRUGS (1)
  1. CHANTIX [Suspect]
     Indication: SMOKING CESSATION THERAPY
     Dosage: TAKE 1 TABLET DAILY 2 DOSES
     Dates: end: 20060101

REACTIONS (3)
  - ANXIETY [None]
  - FORMICATION [None]
  - UNEVALUABLE EVENT [None]
